FAERS Safety Report 14610003 (Version 7)
Quarter: 2019Q4

REPORT INFORMATION
  Report Type: Spontaneous
  Country: US (occurrence: US)
  Receive Date: 20180307
  Receipt Date: 20191227
  Transmission Date: 20200122
  Serious: Yes (Hospitalization)
  Sender: FDA-Public Use
  Company Number: US-ACTELION-A-NJ2018-168511

PATIENT
  Age: 49 Year
  Sex: Female
  Weight: 63.49 kg

DRUGS (5)
  1. UPTRAVI [Suspect]
     Active Substance: SELEXIPAG
     Dosage: 200 MCG, BID
     Route: 048
  2. ADEMPAS [Concomitant]
     Active Substance: RIOCIGUAT
  3. AMBRISENTAN [Concomitant]
     Active Substance: AMBRISENTAN
  4. UPTRAVI [Suspect]
     Active Substance: SELEXIPAG
     Indication: PULMONARY ARTERIAL HYPERTENSION
     Dosage: 1000 MCG, BID
     Route: 048
  5. LETAIRIS [Concomitant]
     Active Substance: AMBRISENTAN

REACTIONS (13)
  - Hospitalisation [Unknown]
  - Transplant evaluation [Unknown]
  - Fall [Recovered/Resolved]
  - Product dose omission [Unknown]
  - Loss of consciousness [Unknown]
  - Syncope [Recovered/Resolved]
  - Pulmonary arterial pressure increased [Unknown]
  - Dyspnoea [Unknown]
  - Incontinence [Unknown]
  - Malaise [Unknown]
  - Cardiac failure [Unknown]
  - Scar [Unknown]
  - Dizziness [Unknown]

NARRATIVE: CASE EVENT DATE: 20191112
